FAERS Safety Report 6882422-2 (Version None)
Quarter: 2010Q3

REPORT INFORMATION
  Report Type: 
  Country: None (occurrence: None)
  Receive Date: 20100729
  Receipt Date: 20100720
  Transmission Date: 20110219
  Serious: Yes (Other)
  Sender: FDA-Public Use
  Company Number: JP-BRISTOL-MYERS SQUIBB COMPANY-15135924

PATIENT
  Age: 38 Year
  Sex: Female
  Weight: 72 kg

DRUGS (3)
  1. ARIPIPRAZOLE [Suspect]
     Indication: MAJOR DEPRESSION
     Dosage: 24DEC09-4JAN10:3MG 5-8JAN10:6MG 9-15JAN10:9MG 16-22JAN10:12MG 23JAN10-28MAY10:15MG
     Route: 048
     Dates: start: 20091225, end: 20100528
  2. LOXONIN [Suspect]
     Indication: HEADACHE
     Route: 048
     Dates: start: 20091225, end: 20100527
  3. ZOLOFT [Suspect]
     Indication: DEPRESSION
     Dosage: 25DEC9:19FEB:100MG,20FEB(75MG),22FEB:28MAY:100MG,29MAY:4JUN10(75MG):05:11JUN10 50MG,12:15JUN10:25MG
     Route: 048
     Dates: start: 20091225, end: 20100615

REACTIONS (2)
  - ABORTION MISSED [None]
  - PREGNANCY [None]
